FAERS Safety Report 21109314 (Version 2)
Quarter: 2022Q3

REPORT INFORMATION
  Report Type: Report from Study
  Country: US (occurrence: US)
  Receive Date: 20220721
  Receipt Date: 20220913
  Transmission Date: 20221026
  Serious: Yes (Other)
  Sender: FDA-Public Use
  Company Number: US-BRISTOL-MYERS SQUIBB COMPANY-2022-072518

PATIENT
  Age: 78 Year
  Sex: Female
  Weight: 99.79 kg

DRUGS (2)
  1. REVLIMID [Suspect]
     Active Substance: LENALIDOMIDE
     Indication: Plasma cell myeloma
     Dosage: EVERY OTHER DAY FOR 10 DOSES?EXPIRY DATE FOR LOT NUMBER A3690A WAS 30-JUN-2024
     Route: 048
     Dates: start: 20210819
  2. REVLIMID [Suspect]
     Active Substance: LENALIDOMIDE
     Indication: Illness

REACTIONS (1)
  - Cataract [Unknown]

NARRATIVE: CASE EVENT DATE: 20220628
